FAERS Safety Report 5685386-2 (Version None)
Quarter: 2008Q1

REPORT INFORMATION
  Report Type: 
  Country: None (occurrence: None)
  Receive Date: 20080328
  Receipt Date: 20080318
  Transmission Date: 20080703
  Serious: Yes (Hospitalization, Other)
  Sender: FDA-Public Use
  Company Number: US-PFIZER INC-2008025523

PATIENT
  Sex: Female
  Weight: 72.727 kg

DRUGS (13)
  1. DILANTIN [Suspect]
     Indication: CONVULSION
  2. SINEMET [Concomitant]
  3. ALL OTHER THERAPEUTIC PRODUCTS [Concomitant]
  4. FAMOTIDINE [Concomitant]
  5. TOPROL-XL [Concomitant]
  6. LISINOPRIL [Concomitant]
  7. PREMARIN [Concomitant]
  8. PHENOBARBITAL TAB [Concomitant]
  9. XANAX [Concomitant]
  10. VICODIN [Concomitant]
  11. PROTONIX [Concomitant]
  12. ZOLOFT [Concomitant]
  13. ANTIBIOTICS [Concomitant]

REACTIONS (5)
  - ANTICONVULSANT DRUG LEVEL INCREASED [None]
  - BLOOD POTASSIUM INCREASED [None]
  - CONTUSION [None]
  - FALL [None]
  - KIDNEY INFECTION [None]
